FAERS Safety Report 5316712-1 (Version None)
Quarter: 2007Q2

REPORT INFORMATION
  Report Type: 
  Country: None (occurrence: None)
  Receive Date: 20070504
  Receipt Date: 20070424
  Transmission Date: 20071010
  Serious: Yes (Disabling)
  Sender: FDA-Public Use
  Company Number: IT-ELI_LILLY_AND_COMPANY-IT200705000360

PATIENT
  Age: 77 Year
  Sex: Male

DRUGS (5)
  1. ZYPREXA [Suspect]
     Indication: SENILE PSYCHOSIS
     Dosage: 2.5 MG, DAILY (1/D)
     Route: 048
     Dates: start: 20061013, end: 20070403
  2. RIVASTIGMINE [Concomitant]
  3. ACETYLSALICYLIC ACID SRT [Concomitant]
  4. VALPROIC ACID [Concomitant]
  5. NIMODIPINE [Concomitant]

REACTIONS (3)
  - DYSARTHRIA [None]
  - FACIAL PALSY [None]
  - MONOPARESIS [None]
